FAERS Safety Report 11700810 (Version 2)
Quarter: 2015Q4

REPORT INFORMATION
  Report Type: Spontaneous
  Country: JP (occurrence: JP)
  Receive Date: 20151105
  Receipt Date: 20151113
  Transmission Date: 20160304
  Serious: Yes (Hospitalization, Other)
  Sender: FDA-Public Use
  Company Number: JP-NOVOPROD-468979

PATIENT
  Age: 80 Year
  Sex: Female
  Weight: 55 kg

DRUGS (12)
  1. ROSUVASTATIN CALCIUM. [Concomitant]
     Active Substance: ROSUVASTATIN CALCIUM
     Dosage: 5 MG, QD (MORNING DOSE)
     Route: 048
     Dates: start: 2009
  2. AMLODIPINE [Concomitant]
     Active Substance: AMLODIPINE BESYLATE
     Dosage: 10 MG, QD (MORNING DOSE)
     Route: 048
     Dates: start: 2006
  3. INSULIN ASPART [Suspect]
     Active Substance: INSULIN ASPART
     Indication: TYPE 2 DIABETES MELLITUS
     Dosage: 30 U, QD (11-11-8)
     Route: 058
     Dates: start: 2005
  4. INSULIN GLARGINE [Suspect]
     Active Substance: INSULIN GLARGINE
     Indication: TYPE 2 DIABETES MELLITUS
     Dosage: 25 U, QD (13-0-12)
     Route: 058
     Dates: start: 2005, end: 2015
  5. AMLODIPINE [Concomitant]
     Active Substance: AMLODIPINE BESYLATE
     Dosage: 5 MG, QD (MORNING DOSE)
     Route: 048
  6. TELMISARTAN. [Concomitant]
     Active Substance: TELMISARTAN
     Dosage: 80 MG, QD (MORNING DOSE)
     Route: 048
     Dates: start: 2006
  7. LANSOPRAZOLE. [Concomitant]
     Active Substance: LANSOPRAZOLE
     Dosage: 15 MG, QD (MORNING DOSE)
     Route: 048
     Dates: start: 2009
  8. MAGNESIUM OXIDE. [Concomitant]
     Active Substance: MAGNESIUM OXIDE
     Dosage: 990 MG (AFTER EACH MEAL)
     Route: 048
  9. ASPIRIN                            /00002701/ [Concomitant]
     Active Substance: ASPIRIN
     Dosage: 100 MG, QD (MORNING DOSE)
     Dates: start: 2009
  10. INSULIN ASPART [Suspect]
     Active Substance: INSULIN ASPART
     Dosage: 16 U, QD (8-4-4)
     Route: 058
  11. TELMISARTAN. [Concomitant]
     Active Substance: TELMISARTAN
     Dosage: 40 MG, QD (MORNING DOSE)
     Route: 048
  12. BISOPROLOL [Suspect]
     Active Substance: BISOPROLOL
     Indication: HYPERTENSION
     Dosage: 2.5 MG, QD (MORNING DOSE)
     Route: 048
     Dates: start: 2006

REACTIONS (4)
  - Hypoglycaemia [Unknown]
  - Hypoglycaemia [Recovered/Resolved]
  - Bradycardia [Recovered/Resolved]
  - Sinus node dysfunction [Recovered/Resolved]

NARRATIVE: CASE EVENT DATE: 2010
